FAERS Safety Report 6569536-1 (Version None)
Quarter: 2010Q1

REPORT INFORMATION
  Report Type: 
  Country: None (occurrence: None)
  Receive Date: 20100202
  Receipt Date: 20100202
  Transmission Date: 20100710
  Serious: Yes (Other)
  Sender: FDA-Public Use
  Company Number: None

PATIENT

DRUGS (2)
  1. DILTIAZEM HCL [Suspect]
     Indication: BLOOD PRESSURE
     Dosage: ONCE A DAY
     Dates: start: 20090801
  2. DILTIAZEM [Suspect]
     Indication: BLOOD PRESSURE
     Dosage: ONCE A DAY
     Dates: start: 20090801

REACTIONS (2)
  - ALOPECIA [None]
  - PRODUCT SUBSTITUTION ISSUE [None]
